FAERS Safety Report 19173228 (Version 1)
Quarter: 2021Q2

REPORT INFORMATION
  Report Type: Spontaneous
  Country: US (occurrence: US)
  Receive Date: 20210422
  Receipt Date: 20210422
  Transmission Date: 20210717
  Serious: Yes (Hospitalization)
  Sender: FDA-Public Use
  Company Number: None

PATIENT
  Age: 68 Year
  Sex: Female
  Weight: 103.42 kg

DRUGS (1)
  1. VITAMIN D [Suspect]
     Active Substance: VITAMIN D NOS
     Indication: CLINICAL TRIAL PARTICIPANT
     Route: 048
     Dates: start: 20200311

REACTIONS (7)
  - Pyrexia [None]
  - Malaise [None]
  - Diarrhoea [None]
  - Asthenia [None]
  - Gait disturbance [None]
  - Chills [None]
  - Stem cell transplant [None]

NARRATIVE: CASE EVENT DATE: 20210421
